FAERS Safety Report 14635933 (Version 1)
Quarter: 2018Q1

REPORT INFORMATION
  Report Type: Spontaneous
  Country: US (occurrence: US)
  Receive Date: 20180314
  Receipt Date: 20180314
  Transmission Date: 20180509
  Serious: Yes (Other)
  Sender: FDA-Public Use
  Company Number: US-PFIZER INC-2018102759

PATIENT
  Age: 64 Year
  Sex: Female
  Weight: 76.66 kg

DRUGS (3)
  1. PREMARIN [Suspect]
     Active Substance: ESTROGENS, CONJUGATED
     Dosage: UNK
  2. PREMARIN [Suspect]
     Active Substance: ESTROGENS, CONJUGATED
     Dosage: .0625 UNSURE OF UNITS, TABLET, ONCE A DAY
     Route: 048
  3. PREMARIN [Suspect]
     Active Substance: ESTROGENS, CONJUGATED
     Indication: HYSTERECTOMY
     Dosage: .0625 UNSURE OF UNITS, TABLET, ONCE A DAY
     Route: 048
     Dates: start: 1998

REACTIONS (4)
  - Onychoclasis [Unknown]
  - Blood pressure inadequately controlled [Recovered/Resolved]
  - Dry skin [Unknown]
  - Trichorrhexis [Unknown]

NARRATIVE: CASE EVENT DATE: 20180223
